FAERS Safety Report 10102478 (Version 2)
Quarter: 2014Q2

REPORT INFORMATION
  Report Type: Other
  Country: US (occurrence: US)
  Receive Date: 20140424
  Receipt Date: 20140610
  Transmission Date: 20141212
  Serious: Yes (Death, Hospitalization, Other)
  Sender: FDA-Public Use
  Company Number: US-GSKPPD-2014GSK000354

PATIENT
  Age: 57 Year
  Sex: Female

DRUGS (5)
  1. AVANDIA [Suspect]
     Indication: DIABETES MELLITUS
     Route: 048
     Dates: start: 2002, end: 2006
  2. AVANDAMET [Suspect]
     Indication: DIABETES MELLITUS
     Dosage: 2/500 MG
     Route: 048
     Dates: start: 2003, end: 2006
  3. FUROSEMIDE [Concomitant]
     Route: 048
     Dates: start: 20060327
  4. TOPROL [Concomitant]
     Route: 048
     Dates: start: 200603
  5. CATAPRES [Concomitant]
     Route: 048
     Dates: start: 200603

REACTIONS (3)
  - Cerebrovascular accident [Unknown]
  - Cardiac failure congestive [Unknown]
  - Ischaemic cardiomyopathy [Fatal]
